FAERS Safety Report 5597578-1 (Version None)
Quarter: 2008Q1

REPORT INFORMATION
  Report Type: 
  Country: None (occurrence: None)
  Receive Date: 20080121
  Receipt Date: 20080117
  Transmission Date: 20080703
  Serious: Yes (Other)
  Sender: FDA-Public Use
  Company Number: A0704185A

PATIENT
  Sex: Male

DRUGS (2)
  1. AROPAX [Suspect]
     Indication: DEPRESSION
     Dosage: 10MG PER DAY
     Dates: start: 19970101
  2. ANAFRANIL [Concomitant]
     Route: 050

REACTIONS (5)
  - AFFECTIVE DISORDER [None]
  - DRUG EXPOSURE DURING PREGNANCY [None]
  - LACTOSE INTOLERANCE [None]
  - PREMATURE BABY [None]
  - SLEEP DISORDER [None]
